FAERS Safety Report 5207316-X (Version None)
Quarter: 2007Q1

REPORT INFORMATION
  Report Type: 
  Country: None (occurrence: None)
  Receive Date: 20070112
  Receipt Date: 20061214
  Transmission Date: 20070707
  Serious: Yes (Death, Life-Threatening, Hospitalization, Other)
  Sender: FDA-Public Use
  Company Number: NSADSS2002018092

PATIENT
  Sex: Male
  Weight: 74 kg

DRUGS (20)
  1. REMICADE [Suspect]
     Route: 041
     Dates: start: 20011024
  2. REMICADE [Suspect]
     Route: 041
     Dates: start: 20011024
  3. REMICADE [Suspect]
     Route: 041
     Dates: start: 20011024
  4. REMICADE [Suspect]
     Route: 041
     Dates: start: 20011024
  5. REMICADE [Suspect]
     Indication: CROHN'S DISEASE
     Route: 041
     Dates: start: 20011024
  6. IMURAN [Suspect]
     Route: 048
  7. IMURAN [Suspect]
     Route: 048
  8. IMURAN [Suspect]
     Indication: CROHN'S DISEASE
     Route: 048
  9. 6-MP [Concomitant]
     Indication: DRUG USE FOR UNKNOWN INDICATION
     Route: 065
  10. IRON [Concomitant]
     Route: 065
  11. CALCIUM [Concomitant]
     Route: 065
  12. PREDNISONE TAB [Concomitant]
  13. PREDNISONE TAB [Concomitant]
  14. ENTOCORT [Concomitant]
  15. ENTOCORT [Concomitant]
  16. BUDESONIDE [Concomitant]
  17. MULTI-VITAMIN [Concomitant]
  18. PROBIOTICA [Concomitant]
  19. VITAMIN E [Concomitant]
  20. MACROBID [Concomitant]

REACTIONS (14)
  - CONVULSION [None]
  - HYPOTENSION [None]
  - MUCOSAL INFLAMMATION [None]
  - MULTI-ORGAN FAILURE [None]
  - NEUTROPENIA [None]
  - PANCYTOPENIA [None]
  - PYREXIA [None]
  - RENAL FAILURE [None]
  - SHOCK [None]
  - SMALL INTESTINAL ULCER HAEMORRHAGE [None]
  - SPLENOMEGALY [None]
  - T-CELL LYMPHOMA [None]
  - TUMOUR LYSIS SYNDROME [None]
  - WEIGHT DECREASED [None]
